FAERS Safety Report 12810136 (Version 2)
Quarter: 2017Q2

REPORT INFORMATION
  Report Type: Spontaneous
  Country: US (occurrence: US)
  Receive Date: 20161005
  Receipt Date: 20170529
  Transmission Date: 20170830
  Serious: Yes (Death, Other)
  Sender: FDA-Public Use
  Company Number: US-PFIZER INC-2016298062

PATIENT
  Age: 70 Year
  Sex: Female
  Weight: 69.4 kg

DRUGS (3)
  1. METFORMIN [Concomitant]
     Active Substance: METFORMIN HYDROCHLORIDE
     Indication: DIABETES MELLITUS
     Dosage: UNK, 2X/DAY (12 (UNIT NOT PROVIDED))
     Route: 048
     Dates: start: 2016
  2. GLIPIZIDE. [Concomitant]
     Active Substance: GLIPIZIDE
     Indication: DIABETES MELLITUS
     Dosage: UNK, 1X/DAY (5 MAY BE OR 10 MG)
     Route: 048
  3. SUTENT [Suspect]
     Active Substance: SUNITINIB MALATE
     Indication: ADRENOCORTICAL CARCINOMA
     Dosage: 25 MG, CYCLIC (ONCE A DAY FOR TWO MONTHS; TWO WEEKS ON, TWO WEEKS OFF)
     Route: 048
     Dates: start: 2016

REACTIONS (6)
  - Neoplasm progression [Fatal]
  - Abdominal distension [Unknown]
  - Hepatic enzyme abnormal [Unknown]
  - Fatigue [Unknown]
  - Gastric dilatation [Unknown]
  - Product use in unapproved indication [Unknown]
